FAERS Safety Report 4690029-0 (Version None)
Quarter: 2005Q2

REPORT INFORMATION
  Report Type: 
  Country: None (occurrence: None)
  Receive Date: 20050614
  Receipt Date: 20050531
  Transmission Date: 20051028
  Serious: Yes (Other)
  Sender: FDA-Public Use
  Company Number: 2005075809

PATIENT
  Age: 67 Year
  Sex: Female
  Weight: 68 kg

DRUGS (1)
  1. FLUCONAZOLE [Suspect]
     Indication: MYCOSIS FUNGOIDES
     Dosage: 1 TSP/DAY (1 IN 1 D), ORAL
     Route: 048
     Dates: start: 20050315, end: 20050318

REACTIONS (7)
  - BURN OESOPHAGEAL [None]
  - CHOLELITHIASIS [None]
  - DYSPEPSIA [None]
  - ERYTHEMA [None]
  - HIATUS HERNIA [None]
  - NASOPHARYNGEAL DISORDER [None]
  - SALIVARY HYPERSECRETION [None]
